FAERS Safety Report 8849566 (Version 2)
Quarter: 2012Q4

REPORT INFORMATION
  Report Type: 
  Country: JP (occurrence: JP)
  Receive Date: 20121019
  Receipt Date: 20121026
  Transmission Date: 20130627
  Serious: Yes (Hospitalization)
  Sender: FDA-Public Use
  Company Number: JP-PFIZER INC-2012257754

PATIENT
  Age: 69 Year
  Sex: Male

DRUGS (1)
  1. ZOSYN [Suspect]
     Dosage: 4.5 g, 3x/day
     Route: 041

REACTIONS (1)
  - Pulmonary eosinophilia [Unknown]
